FAERS Safety Report 4494481-5 (Version None)
Quarter: 2004Q4

REPORT INFORMATION
  Report Type: 
  Country: None (occurrence: None)
  Receive Date: 20041102
  Receipt Date: 20041026
  Transmission Date: 20050328
  Serious: Yes (Death)
  Sender: FDA-Public Use
  Company Number: 200410515BYL

PATIENT
  Age: 59 Year
  Sex: Male
  Weight: 61 kg

DRUGS (12)
  1. LEVITRA [Suspect]
     Indication: ERECTILE DYSFUNCTION
     Dosage: 10 MG, QD, ORAL
     Route: 048
  2. AMOBAN [Concomitant]
  3. PURSENNID [Concomitant]
  4. MAGNESIUM OXIDE [Concomitant]
  5. MARZULENE S [Concomitant]
  6. MEXITIL [Concomitant]
  7. INNOLET R [Concomitant]
  8. LANTUS [Concomitant]
  9. MICARDIS [Concomitant]
  10. KINEDAK [Concomitant]
  11. GANATON [Concomitant]
  12. VIAGRA [Concomitant]

REACTIONS (11)
  - ALCOHOL POISONING [None]
  - ARRHYTHMIA [None]
  - CARDIAC FAILURE [None]
  - CARDIO-RESPIRATORY ARREST [None]
  - CARDIOGENIC SHOCK [None]
  - DEPRESSED MOOD [None]
  - DRUG TOXICITY [None]
  - FEELING ABNORMAL [None]
  - RESPIRATORY FAILURE [None]
  - SUICIDAL IDEATION [None]
  - THERAPY NON-RESPONDER [None]
